FAERS Safety Report 9663804 (Version 1)
Quarter: 2013Q4

REPORT INFORMATION
  Report Type: Spontaneous
  Country: US (occurrence: None)
  Receive Date: 20131030
  Receipt Date: 20131030
  Transmission Date: 20140711
  Serious: Yes (Other)
  Sender: FDA-Public Use
  Company Number: None

PATIENT
  Age: 60 Year
  Sex: Female
  Weight: 65.77 kg

DRUGS (9)
  1. PLAQUENIL [Suspect]
     Indication: RHEUMATOID ARTHRITIS
     Dates: start: 19980101, end: 20080101
  2. DEPAKOTE ER [Concomitant]
  3. LEVOTHYROXINE [Concomitant]
  4. OMEPRAZOLE [Concomitant]
  5. CLARITIN [Concomitant]
  6. OXYTROL [Concomitant]
  7. CALCIUM [Concomitant]
  8. VITAMIN D [Concomitant]
  9. MULTIVITAMIN [Concomitant]

REACTIONS (2)
  - Visual impairment [None]
  - Toxicity to various agents [None]
